FAERS Safety Report 8772184 (Version 3)
Quarter: 2012Q4

REPORT INFORMATION
  Report Type: 
  Country: JP (occurrence: JP)
  Receive Date: 20120904
  Receipt Date: 20121121
  Transmission Date: 20130627
  Serious: Yes (Other)
  Sender: FDA-Public Use
  Company Number: JP-PFIZER INC-2012214283

PATIENT
  Age: 31 Year
  Sex: Female
  Weight: 60 kg

DRUGS (3)
  1. JZOLOFT [Suspect]
     Indication: DEPRESSION
     Dosage: 25 mg, 1x/day
     Route: 048
     Dates: start: 20120207
  2. MEILAX [Suspect]
     Indication: FEELING IRRITATED
     Dosage: 1 mg, 1x/day
     Route: 048
     Dates: start: 20120602
  3. YOKUKAN-SAN [Suspect]
     Dosage: UNK
     Route: 048
     Dates: start: 20120822

REACTIONS (4)
  - Threatened labour [Recovered/Resolved]
  - Vomiting [Recovered/Resolved]
  - Insomnia [Unknown]
  - Irritability [Unknown]
